FAERS Safety Report 8611200-9 (Version None)
Quarter: 2012Q3

REPORT INFORMATION
  Report Type: 
  Country: None (occurrence: None)
  Receive Date: 20120423
  Receipt Date: 20090126
  Transmission Date: 20120928
  Serious: Yes (Other)
  Sender: FDA-Public Use
  Company Number: PHEH2009US00922

PATIENT
  Age: 3 Year
  Sex: Male

DRUGS (4)
  1. EXJADE [Suspect]
     Indication: IRON OVERLOAD
     Dosage: 375 MG, QD, ORAL
     Route: 048
     Dates: start: 20080701, end: 20090116
  2. ERGOCALCIFEROL [Concomitant]
  3. HYDROXYUREA [Concomitant]
  4. PENICILLIN [Concomitant]

REACTIONS (4)
  - HYPERMETROPIA [None]
  - SERUM FERRITIN INCREASED [None]
  - OPTIC NEURITIS [None]
  - CHROMATOPSIA [None]
